FAERS Safety Report 20728027 (Version 2)
Quarter: 2022Q2

REPORT INFORMATION
  Report Type: Report from Study
  Country: CA (occurrence: CA)
  Receive Date: 20220420
  Receipt Date: 20220508
  Transmission Date: 20220721
  Serious: Yes (Hospitalization)
  Sender: FDA-Public Use
  Company Number: CA-BRISTOL-MYERS SQUIBB COMPANY-2022-018908

PATIENT
  Age: 59 Year
  Sex: Male
  Weight: 75.2 kg

DRUGS (1)
  1. OPDIVO [Suspect]
     Active Substance: NIVOLUMAB
     Indication: Gastric cancer
     Dosage: ACD3324- EXPIRY DATE: 31-AUG-2024
     Route: 042
     Dates: start: 20220201

REACTIONS (4)
  - Heart rate decreased [Unknown]
  - Blood pressure systolic increased [Unknown]
  - Pyrexia [Recovered/Resolved]
  - Off label use [Unknown]

NARRATIVE: CASE EVENT DATE: 20220316
